FAERS Safety Report 19497357 (Version 1)
Quarter: 2021Q3

REPORT INFORMATION
  Report Type: Spontaneous
  Country: IN (occurrence: IN)
  Receive Date: 20210706
  Receipt Date: 20210706
  Transmission Date: 20211014
  Serious: Yes (Other)
  Sender: FDA-Public Use
  Company Number: IN-LOTUS-2021-LOTUS-000609

PATIENT
  Age: 21 Year
  Sex: Male

DRUGS (2)
  1. VALPROIC ACID. [Interacting]
     Active Substance: VALPROIC ACID
     Indication: JUVENILE ABSENCE EPILEPSY
  2. METHOTREXATE. [Suspect]
     Active Substance: METHOTREXATE
     Indication: PSORIASIS

REACTIONS (3)
  - Drug interaction [Recovered/Resolved]
  - Seizure [Recovered/Resolved]
  - Drug level below therapeutic [Recovered/Resolved]
